FAERS Safety Report 4648414-9 (Version None)
Quarter: 2005Q2

REPORT INFORMATION
  Report Type: 
  Country: None (occurrence: None)
  Receive Date: 20050427
  Receipt Date: 20050406
  Transmission Date: 20051028
  Serious: Yes (Hospitalization)
  Sender: FDA-Public Use
  Company Number: JP_050306088

PATIENT
  Age: 55 Year
  Sex: Female

DRUGS (4)
  1. ZYPREXA [Suspect]
     Indication: SCHIZOPHRENIA
     Dosage: 15 MG DAY
     Dates: start: 20041117, end: 20050104
  2. ZOTEPINE [Concomitant]
  3. BIPERIDEN HYDROCHLORIDE [Concomitant]
  4. FLUNITRAZEPAM [Concomitant]

REACTIONS (10)
  - BLOOD PRESSURE INCREASED [None]
  - COORDINATION ABNORMAL [None]
  - DEPRESSED LEVEL OF CONSCIOUSNESS [None]
  - DYSURIA [None]
  - HEPATIC FUNCTION ABNORMAL [None]
  - HYPERREFLEXIA [None]
  - NEUROLEPTIC MALIGNANT SYNDROME [None]
  - PSYCHIATRIC SYMPTOM [None]
  - SEROTONIN SYNDROME [None]
  - TACHYCARDIA [None]
